FAERS Safety Report 5281622-5 (Version None)
Quarter: 2007Q1

REPORT INFORMATION
  Report Type: 
  Country: None (occurrence: None)
  Receive Date: 20070330
  Receipt Date: 20070319
  Transmission Date: 20070707
  Serious: Yes (Other)
  Sender: FDA-Public Use
  Company Number: US-AMGEN-STX216192

PATIENT
  Sex: Male

DRUGS (1)
  1. ENBREL [Suspect]
     Indication: ANKYLOSING SPONDYLITIS
     Route: 058
     Dates: start: 20041001, end: 20060101

REACTIONS (5)
  - BALANCE DISORDER [None]
  - CHILLS [None]
  - DIZZINESS [None]
  - SCROTAL DISORDER [None]
  - TESTICULAR SWELLING [None]
